FAERS Safety Report 20185170 (Version 1)
Quarter: 2021Q4

REPORT INFORMATION
  Report Type: Spontaneous
  Country: US (occurrence: US)
  Receive Date: 20211215
  Receipt Date: 20211215
  Transmission Date: 20220303
  Serious: Yes (Other)
  Sender: FDA-Public Use
  Company Number: US-AUROBINDO-AUR-APL-2021-025860

PATIENT
  Sex: Male

DRUGS (1)
  1. FINASTERIDE [Suspect]
     Active Substance: FINASTERIDE
     Indication: Product used for unknown indication
     Dosage: ONE PILL EVERY 6 DAYS
     Route: 065

REACTIONS (7)
  - Erectile dysfunction [Unknown]
  - Ejaculation failure [Unknown]
  - Breast enlargement [Unknown]
  - Breast tenderness [Unknown]
  - Anorgasmia [Unknown]
  - Breast fibrosis [Unknown]
  - Breast pain [Unknown]
